FAERS Safety Report 6596438-7 (Version None)
Quarter: 2010Q1

REPORT INFORMATION
  Report Type: 
  Country: None (occurrence: None)
  Receive Date: 20100223
  Receipt Date: 20100215
  Transmission Date: 20100710
  Serious: Yes (Death)
  Sender: FDA-Public Use
  Company Number: JP-AMGEN-US394010

PATIENT
  Age: 78 Year
  Sex: Female

DRUGS (4)
  1. ENBREL [Suspect]
     Indication: RHEUMATOID ARTHRITIS
     Route: 058
     Dates: start: 20051022, end: 20100112
  2. PREDONINE [Concomitant]
  3. ANPLAG [Concomitant]
  4. MOBIC [Concomitant]

REACTIONS (1)
  - CEREBROVASCULAR DISORDER [None]
